FAERS Safety Report 13490992 (Version 1)
Quarter: 2017Q2

REPORT INFORMATION
  Report Type: Spontaneous
  Country: DE (occurrence: DE)
  Receive Date: 20170427
  Receipt Date: 20170427
  Transmission Date: 20170830
  Serious: Yes (Hospitalization, Other)
  Sender: FDA-Public Use
  Company Number: DE-DRREDDYS-GER/GER/17/0089638

PATIENT
  Age: 47 Year
  Sex: Female

DRUGS (2)
  1. IBUPROFEN. [Concomitant]
     Active Substance: IBUPROFEN
     Indication: PAIN
  2. RAMIPRIL. [Suspect]
     Active Substance: RAMIPRIL
     Indication: HYPERTENSION
     Route: 048
     Dates: start: 20170325

REACTIONS (6)
  - Medical induction of coma [Unknown]
  - Renal impairment [Unknown]
  - Hypersensitivity [Unknown]
  - Dyspnoea [Unknown]
  - Vomiting [Unknown]
  - Swelling [Unknown]

NARRATIVE: CASE EVENT DATE: 20170325
